FAERS Safety Report 8902615 (Version 3)
Quarter: 2013Q1

REPORT INFORMATION
  Report Type: Report from Study
  Country: CN (occurrence: CN)
  Receive Date: 20121112
  Receipt Date: 20130322
  Transmission Date: 20140127
  Serious: Yes (Death, Hospitalization)
  Sender: FDA-Public Use
  Company Number: CN-BAYER-2011-113065

PATIENT
  Age: 62 Year
  Sex: Male
  Weight: 60 kg

DRUGS (17)
  1. SORAFENIB (RAF KINASE INHIBITOR) [Suspect]
     Indication: THYROID CANCER
     Dosage: OPEN LABEL: 400 MG, BID
     Route: 048
     Dates: start: 20111109, end: 20111118
  2. SORAFENIB (RAF KINASE INHIBITOR) [Suspect]
     Indication: THYROID CANCER
     Dosage: OPEN LABEL: 200 MG, ST
     Route: 048
     Dates: start: 20111124, end: 20111124
  3. SORAFENIB (RAF KINASE INHIBITOR) [Suspect]
     Indication: THYROID CANCER
     Dosage: OPEN LABEL: 400 MG, BID
     Route: 048
     Dates: start: 20111125, end: 20120831
  4. PLACEBO [Suspect]
     Indication: THYROID CANCER STAGE IV
     Dosage: 400 MG, BID
     Route: 048
     Dates: start: 20110402, end: 20110502
  5. PLACEBO [Suspect]
     Indication: THYROID CANCER STAGE IV
     Dosage: 400 MG, BID
     Route: 048
     Dates: start: 20110503, end: 20110531
  6. PLACEBO [Suspect]
     Indication: THYROID CANCER STAGE IV
     Dosage: 400 MG, BID
     Route: 048
     Dates: start: 20110601, end: 20110703
  7. PLACEBO [Suspect]
     Indication: THYROID CANCER STAGE IV
     Dosage: 400 MG, BID
     Route: 048
     Dates: start: 20110704, end: 20110726
  8. PLACEBO [Suspect]
     Indication: THYROID CANCER STAGE IV
     Dosage: 400 MG, BID
     Route: 048
     Dates: start: 20110727, end: 20110821
  9. PLACEBO [Suspect]
     Indication: THYROID CANCER STAGE IV
     Dosage: 400 MG, BID
     Route: 048
     Dates: start: 20110822, end: 20110920
  10. PLACEBO [Suspect]
     Indication: THYROID CANCER STAGE IV
     Dosage: 400 MG, BID
     Route: 048
     Dates: start: 20110921, end: 20111018
  11. PLACEBO [Suspect]
     Indication: THYROID CANCER STAGE IV
     Dosage: 400 MG, BID
     Route: 048
     Dates: start: 20111019, end: 20111102
  12. LEVOTHYROXINE [Concomitant]
     Indication: HYPOTHYROIDISM
     Dosage: 100 MCG/DAY
     Route: 048
     Dates: start: 2007, end: 20120409
  13. LEVOTHYROXINE [Concomitant]
     Indication: NEOPLASM MALIGNANT
     Dosage: 125 ?G, PRN
     Route: 048
     Dates: start: 20120409, end: 20120503
  14. LEVOTHYROXINE [Concomitant]
     Indication: BLOOD THYROID STIMULATING HORMONE INCREASED
     Dosage: 125 ?G, QD
     Route: 048
     Dates: start: 20120503, end: 20120530
  15. LEVOTHYROXINE [Concomitant]
     Indication: HYPOTHYROIDISM
     Dosage: 125 ?G, QD
     Dates: start: 20120530, end: 20120627
  16. LEVOTHYROXINE [Concomitant]
     Indication: HYPOTHYROIDISM
     Dosage: 125 ?G, QD
     Dates: start: 20120627
  17. ULTRAVIST [Concomitant]
     Indication: NEOPLASM
     Dosage: 150 CC PRN
     Route: 042
     Dates: start: 20110401, end: 20120725

REACTIONS (3)
  - Cerebral infarction [Fatal]
  - Bacteraemia [Recovered/Resolved]
  - Pyrexia [Recovered/Resolved]
